FAERS Safety Report 9375127 (Version 2)
Quarter: 2013Q4

REPORT INFORMATION
  Report Type: Spontaneous
  Country: US (occurrence: US)
  Receive Date: 20130628
  Receipt Date: 20131015
  Transmission Date: 20140711
  Serious: No
  Sender: FDA-Public Use
  Company Number: US-ELI_LILLY_AND_COMPANY-US201306006038

PATIENT
  Sex: Female

DRUGS (3)
  1. CYMBALTA [Suspect]
     Indication: FIBROMYALGIA
     Dosage: 120 MG, QD
  2. CYMBALTA [Suspect]
     Indication: OSTEOARTHRITIS
     Dosage: 60 MG, QD
  3. CYMBALTA [Suspect]
     Indication: COMPLEX REGIONAL PAIN SYNDROME

REACTIONS (7)
  - Cataract [Unknown]
  - Mouth ulceration [Unknown]
  - Dry mouth [Unknown]
  - Dry eye [Unknown]
  - Oropharyngeal pain [Unknown]
  - Insomnia [Unknown]
  - Pain [Unknown]
